FAERS Safety Report 22089331 (Version 1)
Quarter: 2023Q1

REPORT INFORMATION
  Report Type: Other
  Country: US (occurrence: None)
  Receive Date: 20230313
  Receipt Date: 20230313
  Transmission Date: 20230417
  Serious: Yes (Hospitalization)
  Sender: FDA-Public Use
  Company Number: US-ROCHE-3301138

PATIENT
  Sex: Female

DRUGS (1)
  1. EVRYSDI [Suspect]
     Active Substance: RISDIPLAM
     Indication: Spinal muscular atrophy
     Route: 048

REACTIONS (7)
  - Gastrointestinal sounds abnormal [Unknown]
  - Hypoglycaemia [Unknown]
  - Dehydration [Unknown]
  - Nephrolithiasis [Unknown]
  - Cyst [Unknown]
  - Abdominal discomfort [Unknown]
  - Product storage error [Unknown]
